FAERS Safety Report 16328423 (Version 4)
Quarter: 2021Q4

REPORT INFORMATION
  Report Type: Spontaneous
  Country: CA (occurrence: CA)
  Receive Date: 20190518
  Receipt Date: 20211111
  Transmission Date: 20220303
  Serious: Yes (Life-Threatening, Hospitalization, Disabling, Other)
  Sender: FDA-Public Use
  Company Number: CA-AUROBINDO-AUR-APL-2019-027449

PATIENT
  Age: 49 Year
  Sex: Female

DRUGS (17)
  1. AMLODIPINE [Suspect]
     Active Substance: AMLODIPINE BESYLATE
     Indication: Product used for unknown indication
     Dosage: 150 MILLIGRAM, ONCE A DAY
     Route: 048
  2. ESCITALOPRAM [Suspect]
     Active Substance: ESCITALOPRAM OXALATE
     Indication: Product used for unknown indication
     Dosage: 60 MILLIGRAM, ONCE A DAY
     Route: 065
  3. ESCITALOPRAM [Suspect]
     Active Substance: ESCITALOPRAM OXALATE
     Dosage: UNK
     Route: 048
  4. POTASSIUM CHLORIDE [Suspect]
     Active Substance: POTASSIUM CHLORIDE
     Indication: Electrolyte substitution therapy
     Dosage: UNK
     Route: 042
  5. POTASSIUM CHLORIDE [Suspect]
     Active Substance: POTASSIUM CHLORIDE
     Dosage: UNK
     Route: 048
  6. EPINEPHRINE [Suspect]
     Active Substance: EPINEPHRINE
     Indication: Blood pressure measurement
     Dosage: 30 MICROGRAM
     Route: 065
  7. DEXTROSE [Suspect]
     Active Substance: DEXTROSE
     Indication: Resuscitation
     Dosage: SOLUTION INTRAVENOUS
     Route: 065
  8. VASOPRESSIN [Suspect]
     Active Substance: VASOPRESSIN
     Indication: Blood pressure measurement
     Dosage: UNK
     Route: 065
  9. NOREPINEPHRINE BITARTRATE [Suspect]
     Active Substance: NOREPINEPHRINE BITARTRATE
     Indication: Blood pressure measurement
     Dosage: 30 MICROGRAM, LIQUID INTRAVENOUS
     Route: 065
  10. RISPERIDONE [Suspect]
     Active Substance: RISPERIDONE
     Indication: Product used for unknown indication
     Dosage: 6 MILLIGRAM, ONCE A DAY
     Route: 048
  11. ACTIVATED CHARCOAL [Concomitant]
     Active Substance: ACTIVATED CHARCOAL
     Indication: Gastric lavage
     Dosage: 50 GRAM
     Route: 065
  12. AMLODIPINE [Concomitant]
     Active Substance: AMLODIPINE BESYLATE
     Indication: Product used for unknown indication
     Dosage: UNK
     Route: 065
  13. CALCIUM GLUCONATE [Concomitant]
     Active Substance: CALCIUM GLUCONATE
     Indication: Product used for unknown indication
     Dosage: UNK
     Route: 065
  14. DEXTROSE [Concomitant]
     Active Substance: DEXTROSE
     Indication: Product used for unknown indication
     Dosage: UNK
     Route: 065
  15. GLUCAGON [Concomitant]
     Active Substance: GLUCAGON
     Indication: Resuscitation
     Dosage: KIT
     Route: 065
  16. INSULIN NOS [Concomitant]
     Active Substance: INSULIN NOS
     Indication: Product used for unknown indication
     Dosage: 70 INTERNATIONAL UNIT
     Route: 065
  17. INSULIN NOS [Concomitant]
     Active Substance: INSULIN NOS
     Indication: Product used for unknown indication
     Dosage: UNK
     Route: 040

REACTIONS (37)
  - Intentional overdose [Recovered/Resolved]
  - Altered state of consciousness [Recovered/Resolved]
  - Blindness [Recovered/Resolved]
  - Shock [Unknown]
  - Anuria [Recovered/Resolved]
  - Circulatory collapse [Recovered/Resolved]
  - Condition aggravated [Recovered/Resolved]
  - Electrocardiogram P wave abnormal [Not Recovered/Not Resolved]
  - Hypoglycaemia [Recovered/Resolved]
  - Cerebral infarction [Unknown]
  - Depressed level of consciousness [Recovered/Resolved]
  - Electrocardiogram ST segment depression [Not Recovered/Not Resolved]
  - CSF pressure increased [Not Recovered/Not Resolved]
  - Electrocardiogram T wave amplitude decreased [Not Recovered/Not Resolved]
  - Electrocardiogram T wave inversion [Not Recovered/Not Resolved]
  - Electrocardiogram U wave present [Not Recovered/Not Resolved]
  - Optic atrophy [Recovered/Resolved]
  - Optic nerve injury [Recovered/Resolved]
  - Pulmonary oedema [Recovered/Resolved]
  - Renal tubular necrosis [Not Recovered/Not Resolved]
  - Reversible cerebral vasoconstriction syndrome [Not Recovered/Not Resolved]
  - Tachycardia [Recovered/Resolved]
  - Toxicity to various agents [Recovered/Resolved]
  - Hypothermia [Unknown]
  - Hypokalaemia [Recovered/Resolved]
  - Hypotension [Recovered/Resolved]
  - Hyperdynamic left ventricle [Recovered/Resolved]
  - Embolism [Unknown]
  - Cardiogenic shock [Unknown]
  - Visual impairment [Unknown]
  - Embolism arterial [Unknown]
  - Colour blindness [Unknown]
  - Blindness cortical [Unknown]
  - Cytotoxic oedema [Unknown]
  - Ischaemia [Unknown]
  - Overdose [Unknown]
  - Retinal ischaemia [Unknown]
